FAERS Safety Report 21616129 (Version 1)
Quarter: 2022Q4

REPORT INFORMATION
  Report Type: Spontaneous
  Country: US (occurrence: None)
  Receive Date: 20221118
  Receipt Date: 20221118
  Transmission Date: 20230113
  Serious: Yes (Other)
  Sender: FDA-Public Use
  Company Number: None

PATIENT
  Age: 75 Year
  Sex: Male
  Weight: 88.7 kg

DRUGS (1)
  1. TRAMADOL [Suspect]
     Active Substance: TRAMADOL
     Indication: Procedural pain
     Dosage: FREQUENCY : 4 TIMES A DAY;?
     Dates: start: 20221115, end: 20221118

REACTIONS (1)
  - Seizure [None]

NARRATIVE: CASE EVENT DATE: 20221117
